FAERS Safety Report 8330529-5 (Version None)
Quarter: 2012Q2

REPORT INFORMATION
  Report Type: 
  Country: None (occurrence: None)
  Receive Date: 20120502
  Receipt Date: 20120403
  Transmission Date: 20120825
  Serious: Yes (Other)
  Sender: FDA-Public Use
  Company Number: US-AMGEN-USASP2012021210

PATIENT
  Age: 13 Year
  Sex: Female

DRUGS (2)
  1. BACTRIM [Concomitant]
  2. ENBREL [Suspect]
     Indication: PSORIASIS
     Dosage: 25 MG, 2 TIMES/WK
     Dates: start: 20111201

REACTIONS (4)
  - MENTAL STATUS CHANGES [None]
  - PYREXIA [None]
  - INFLUENZA LIKE ILLNESS [None]
  - CONVULSION [None]
